FAERS Safety Report 6858809-0 (Version None)
Quarter: 2010Q3

REPORT INFORMATION
  Report Type: 
  Country: None (occurrence: None)
  Receive Date: 20100719
  Receipt Date: 20080616
  Transmission Date: 20110219
  Serious: Yes (Hospitalization)
  Sender: FDA-Public Use
  Company Number: US-PFIZER INC-2008015925

PATIENT
  Sex: Female
  Weight: 70 kg

DRUGS (4)
  1. CHANTIX [Suspect]
     Indication: SMOKING CESSATION THERAPY
     Dates: start: 20071222
  2. ALL OTHER THERAPEUTIC PRODUCTS [Concomitant]
     Indication: BIPOLAR DISORDER
  3. ANTIHYPERTENSIVES [Concomitant]
     Indication: HYPERTENSION
  4. SPIRIVA [Concomitant]
     Indication: CHRONIC OBSTRUCTIVE PULMONARY DISEASE

REACTIONS (21)
  - ABDOMINAL PAIN [None]
  - ABNORMAL DREAMS [None]
  - BACTERIAL TEST [None]
  - CHILLS [None]
  - CONSTIPATION [None]
  - DIARRHOEA [None]
  - DRY EYE [None]
  - EYE PAIN [None]
  - FATIGUE [None]
  - GASTRITIS [None]
  - GASTROOESOPHAGEAL REFLUX DISEASE [None]
  - HEADACHE [None]
  - INSOMNIA [None]
  - LETHARGY [None]
  - MALAISE [None]
  - NAUSEA [None]
  - PANCREATITIS ACUTE [None]
  - SLEEP DISORDER [None]
  - THIRST [None]
  - VISION BLURRED [None]
  - WEIGHT INCREASED [None]
